FAERS Safety Report 8806429 (Version 2)
Quarter: 2012Q4

REPORT INFORMATION
  Report Type: 
  Country: FR (occurrence: FR)
  Receive Date: 20120925
  Receipt Date: 20121217
  Transmission Date: 20130627
  Serious: Yes (Other)
  Sender: FDA-Public Use
  Company Number: FR-SANOFI-AVENTIS-2012SA067639

PATIENT
  Age: 58 Year
  Sex: Male
  Weight: 88 kg

DRUGS (1)
  1. XATRAL [Suspect]
     Indication: BENIGN PROSTATIC HYPERTROPHY
     Route: 048
     Dates: start: 20041122

REACTIONS (1)
  - Leukocytosis [Not Recovered/Not Resolved]
